FAERS Safety Report 10216178 (Version 1)
Quarter: 2014Q2

REPORT INFORMATION
  Report Type: Spontaneous
  Country: US (occurrence: None)
  Receive Date: 20140603
  Receipt Date: 20140603
  Transmission Date: 20141212
  Serious: No
  Sender: FDA-Public Use
  Company Number: None

PATIENT
  Age: 53 Year
  Sex: Female
  Weight: 83.92 kg

DRUGS (1)
  1. HCG INJECTIONS [Suspect]
     Indication: WEIGHT DECREASED
     Dosage: 21 DAYS ONCE DAILY

REACTIONS (1)
  - Breast cancer stage II [None]
